FAERS Safety Report 25906604 (Version 4)
Quarter: 2025Q4

REPORT INFORMATION
  Report Type: Spontaneous
  Country: US (occurrence: US)
  Receive Date: 20251010
  Receipt Date: 20251110
  Transmission Date: 20260119
  Serious: No
  Sender: PFIZER
  Company Number: US-PFIZER INC-202500198937

PATIENT
  Age: 13 Year
  Sex: Female
  Weight: 40.816 kg

DRUGS (1)
  1. GENOTROPIN [Suspect]
     Active Substance: SOMATROPIN
     Dosage: 2 MG, DAILY (7 DAYS/WEEK, EVERY NIGHT)

REACTIONS (3)
  - Device mechanical issue [Unknown]
  - Device difficult to use [Unknown]
  - Off label use [Unknown]
